FAERS Safety Report 6233163-6 (Version None)
Quarter: 2009Q2

REPORT INFORMATION
  Report Type: 
  Country: None (occurrence: None)
  Receive Date: 20090617
  Receipt Date: 20090603
  Transmission Date: 20091009
  Serious: Yes (Other)
  Sender: FDA-Public Use
  Company Number: US-BAYER-200922635NA

PATIENT
  Age: 41 Year
  Sex: Female
  Weight: 100 kg

DRUGS (1)
  1. MAGNEVIST [Suspect]
     Indication: NUCLEAR MAGNETIC RESONANCE IMAGING BRAIN
     Dosage: RIGHT ANTECUBITAL SITE; BY HAND INJECTION
     Route: 042
     Dates: start: 20090329, end: 20090329

REACTIONS (4)
  - CHEST PAIN [None]
  - DIZZINESS [None]
  - DYSPNOEA [None]
  - WHEEZING [None]
